FAERS Safety Report 5496064-7 (Version None)
Quarter: 2007Q4

REPORT INFORMATION
  Report Type: 
  Country: None (occurrence: None)
  Receive Date: 20071025
  Receipt Date: 20070117
  Transmission Date: 20080405
  Serious: No
  Sender: FDA-Public Use
  Company Number: A0635998A

PATIENT
  Age: 63 Year
  Sex: Female

DRUGS (10)
  1. ADVAIR DISKUS 100/50 [Suspect]
     Indication: CHRONIC OBSTRUCTIVE PULMONARY DISEASE
     Dosage: 1BLS TWICE PER DAY
     Route: 055
     Dates: start: 20040101
  2. CARDIZEM [Concomitant]
  3. XANAX [Concomitant]
  4. K-DUR 10 [Concomitant]
  5. ZANTAC [Concomitant]
  6. CLARITIN [Concomitant]
  7. UNKNOWN MEDICATION [Concomitant]
  8. VITAMIN CAP [Concomitant]
  9. ALBUTEROL [Concomitant]
  10. VITAMINS [Concomitant]

REACTIONS (3)
  - GLOSSODYNIA [None]
  - MOUTH INJURY [None]
  - TONGUE HAEMORRHAGE [None]
